FAERS Safety Report 10181826 (Version 1)
Quarter: 2014Q2

REPORT INFORMATION
  Report Type: Spontaneous
  Country: US (occurrence: US)
  Receive Date: 20140519
  Receipt Date: 20140519
  Transmission Date: 20141212
  Serious: Yes (Other)
  Sender: FDA-Public Use
  Company Number: US-FRI-1000067380

PATIENT
  Sex: Male

DRUGS (1)
  1. SAPHRIS [Suspect]
     Dates: start: 201405

REACTIONS (2)
  - Road traffic accident [Recovered/Resolved]
  - Feeling abnormal [Recovered/Resolved]
